FAERS Safety Report 6447582-6 (Version None)
Quarter: 2009Q4

REPORT INFORMATION
  Report Type: 
  Country: None (occurrence: None)
  Receive Date: 20091119
  Receipt Date: 20091104
  Transmission Date: 20100525
  Serious: Yes (Other)
  Sender: FDA-Public Use
  Company Number: US-GENENTECH-294643

PATIENT
  Age: 89 Year
  Sex: Male

DRUGS (2)
  1. LUCENTIS [Suspect]
     Indication: MACULAR DEGENERATION
     Route: 031
  2. VISUDYNE [Suspect]
     Indication: PHOTODYNAMIC THERAPY

REACTIONS (2)
  - MACULAR DEGENERATION [None]
  - RETINAL DEGENERATION [None]
